FAERS Safety Report 17261493 (Version 2)
Quarter: 2020Q1

REPORT INFORMATION
  Report Type: Report from Study
  Country: IT (occurrence: IT)
  Receive Date: 20200113
  Receipt Date: 20200327
  Transmission Date: 20200409
  Serious: Yes (Other)
  Sender: FDA-Public Use
  Company Number: IT-ACCORD-169344

PATIENT
  Age: 56 Year
  Sex: Female

DRUGS (7)
  1. ONDANSETRON [Concomitant]
     Active Substance: ONDANSETRON
  2. PLASIL [Concomitant]
     Active Substance: METOCLOPRAMIDE HYDROCHLORIDE
     Indication: ANTIEMETIC SUPPORTIVE CARE
  3. EPIRUBICIN [Suspect]
     Active Substance: EPIRUBICIN
     Indication: BREAST CANCER
     Route: 042
     Dates: start: 20191107, end: 20191219
  4. FLUOROURACIL. [Suspect]
     Active Substance: FLUOROURACIL
     Indication: BREAST CANCER
     Route: 042
     Dates: start: 20191109
  5. ENDOXAN BAXTER [Suspect]
     Active Substance: CYCLOPHOSPHAMIDE
     Indication: BREAST CANCER
     Route: 042
     Dates: start: 20191107, end: 20191219
  6. DELTACORTENE [Concomitant]
     Active Substance: PREDNISONE
  7. CONTRAMAL [Concomitant]
     Active Substance: TRAMADOL HYDROCHLORIDE
     Indication: ANALGESIC THERAPY

REACTIONS (12)
  - Dysgeusia [Unknown]
  - Myalgia [Unknown]
  - Xerophthalmia [Unknown]
  - Hot flush [Unknown]
  - Gastritis [Unknown]
  - Sleep disorder [Unknown]
  - Alopecia [Unknown]
  - Diarrhoea [Unknown]
  - Gingivitis [Unknown]
  - Abdominal pain upper [Unknown]
  - Paraesthesia [Unknown]
  - Constipation [Unknown]

NARRATIVE: CASE EVENT DATE: 20191207
